FAERS Safety Report 19837323 (Version 1)
Quarter: 2021Q3

REPORT INFORMATION
  Report Type: Report from Study
  Country: BR (occurrence: BR)
  Receive Date: 20210916
  Receipt Date: 20210916
  Transmission Date: 20211014
  Serious: Yes (Other)
  Sender: FDA-Public Use
  Company Number: NVSC2021BR207807

PATIENT
  Sex: Female

DRUGS (2)
  1. DIOVAN [Suspect]
     Active Substance: VALSARTAN
     Dosage: UNK, 160+25MG
     Route: 065
  2. DIOVAN [Suspect]
     Active Substance: VALSARTAN
     Indication: PRODUCT USED FOR UNKNOWN INDICATION
     Dosage: 160+12 AND A HALF
     Route: 065
     Dates: start: 2005, end: 2018

REACTIONS (4)
  - Hypoacusis [Unknown]
  - Incorrect dose administered [Recovered/Resolved]
  - Confusional state [Unknown]
  - Deafness [Unknown]

NARRATIVE: CASE EVENT DATE: 2005
